FAERS Safety Report 9826931 (Version 1)
Quarter: 2014Q1

REPORT INFORMATION
  Report Type: Spontaneous
  Country: US (occurrence: None)
  Receive Date: 20140115
  Receipt Date: 20140115
  Transmission Date: 20141002
  Serious: Yes (Other)
  Sender: FDA-Public Use
  Company Number: 20130760

PATIENT
  Age: 79 Year
  Sex: Female
  Weight: 49 kg

DRUGS (8)
  1. VENOFER [Suspect]
     Dosage: EVERY WEEK
     Dates: start: 20131217, end: 20131217
  2. EPOGEN [Suspect]
     Route: 040
     Dates: start: 20131217, end: 20131217
  3. HECTOROL [Suspect]
     Dates: start: 20131217, end: 20131217
  4. FRESENIUS DIALYZER, UNKNOWN UNKNOWN UNK/UNK [Concomitant]
  5. FRESENIUS NORMAL SALINE, UNKNOWN UNKNOWN UNK/UNK [Concomitant]
  6. FRESENIUS BLOOD LINES, UNKNOWN UNKNOWN UNK/UNK [Concomitant]
  7. GRANUFLO, UNKNOWN UNKNOWN UNK/UNK [Concomitant]
  8. NATURALYTE, UNKNOWN UNKNOWN UNK/UNK [Concomitant]

REACTIONS (3)
  - Hypotension [None]
  - Depressed level of consciousness [None]
  - Unevaluable event [None]
